FAERS Safety Report 20690076 (Version 1)
Quarter: 2022Q2

REPORT INFORMATION
  Report Type: Spontaneous
  Country: IT (occurrence: IT)
  Receive Date: 20220408
  Receipt Date: 20220408
  Transmission Date: 20220721
  Serious: Yes (Death, Other)
  Sender: FDA-Public Use
  Company Number: IT-ALXN-A202204258

PATIENT
  Age: 68 Year
  Sex: Male

DRUGS (2)
  1. SOLIRIS [Suspect]
     Active Substance: ECULIZUMAB
     Indication: Rhabdomyolysis
     Dosage: 600 MG, QW
     Route: 065
  2. SOLIRIS [Suspect]
     Active Substance: ECULIZUMAB
     Indication: Off label use

REACTIONS (6)
  - Pseudomonas infection [Fatal]
  - Cytopenia [Fatal]
  - Cardiogenic shock [Fatal]
  - Hypoglycaemia [Fatal]
  - Pleural effusion [Fatal]
  - Off label use [Unknown]
